FAERS Safety Report 9257157 (Version 2)
Quarter: 2013Q2

REPORT INFORMATION
  Report Type: Spontaneous
  Country: US (occurrence: None)
  Receive Date: 20130423
  Receipt Date: 20130425
  Transmission Date: 20140414
  Serious: Yes (Hospitalization)
  Sender: FDA-Public Use
  Company Number: USA/USA/13/0029132

PATIENT
  Age: 74 Year
  Sex: Female

DRUGS (1)
  1. MINOCYCLINE HYDROCHLORIDE [Suspect]
     Indication: RHEUMATOID ARTHRITIS

REACTIONS (2)
  - Upper gastrointestinal haemorrhage [None]
  - Pigmentation disorder [None]
